FAERS Safety Report 25095930 (Version 1)
Quarter: 2025Q1

REPORT INFORMATION
  Report Type: Spontaneous
  Country: ES (occurrence: ES)
  Receive Date: 20250319
  Receipt Date: 20250319
  Transmission Date: 20250409
  Serious: Yes (Death)
  Sender: PFIZER
  Company Number: ES-PFIZER INC-PV202500032860

PATIENT
  Age: 47 Year
  Sex: Female

DRUGS (3)
  1. TUCATINIB [Suspect]
     Active Substance: TUCATINIB
     Dosage: 300 MG, 2X/DAY
     Dates: start: 202308
  2. TRASTUZUMAB [Suspect]
     Active Substance: TRASTUZUMAB
     Route: 058
     Dates: start: 202308
  3. CAPECITABINE [Suspect]
     Active Substance: CAPECITABINE
     Dates: start: 202308

REACTIONS (8)
  - Metastases to spine [Fatal]
  - Malignant neoplasm progression [Fatal]
  - Spinal cord compression [Fatal]
  - Asthenia [Fatal]
  - Paraplegia [Fatal]
  - Hypercalcaemia of malignancy [Unknown]
  - Diarrhoea [Recovered/Resolved]
  - Off label use [Unknown]

NARRATIVE: CASE EVENT DATE: 20230801
